FAERS Safety Report 14208469 (Version 1)
Quarter: 2017Q4

REPORT INFORMATION
  Report Type: Spontaneous
  Country: JP (occurrence: JP)
  Receive Date: 20171121
  Receipt Date: 20171121
  Transmission Date: 20180321
  Serious: No
  Sender: FDA-Public Use
  Company Number: JP-PFIZER INC-2017499542

PATIENT
  Age: 7 Decade
  Sex: Male

DRUGS (6)
  1. FOSPHENYTOIN SODIUM. [Suspect]
     Active Substance: FOSPHENYTOIN SODIUM
     Dosage: UNK
  2. EXCEGRAN [Suspect]
     Active Substance: ZONISAMIDE
     Dosage: UNK
  3. NASEA [Suspect]
     Active Substance: RAMOSETRON HYDROCHLORIDE
     Dosage: UNK
  4. TEMODAL [Suspect]
     Active Substance: TEMOZOLOMIDE
     Dosage: UNK
  5. SENNOSIDE [Suspect]
     Active Substance: SENNOSIDES
     Dosage: UNK
  6. LAMOTRIGINE. [Suspect]
     Active Substance: LAMOTRIGINE
     Dosage: UNK

REACTIONS (1)
  - Erythema [Recovered/Resolved]

NARRATIVE: CASE EVENT DATE: 20141107
